FAERS Safety Report 16338490 (Version 1)
Quarter: 2019Q2

REPORT INFORMATION
  Report Type: Spontaneous
  Country: US (occurrence: US)
  Receive Date: 20190521
  Receipt Date: 20190521
  Transmission Date: 20190711
  Serious: Yes (Hospitalization)
  Sender: FDA-Public Use
  Company Number: US-ASTRAZENECA-2019SE73859

PATIENT
  Sex: Female

DRUGS (1)
  1. TUDORZA PRESSAIR [Suspect]
     Active Substance: ACLIDINIUM BROMIDE
     Indication: CHRONIC OBSTRUCTIVE PULMONARY DISEASE
     Dosage: 400UG/INHAL TWO TIMES A DAY
     Route: 055

REACTIONS (6)
  - Dyspnoea [Unknown]
  - Bronchitis [Unknown]
  - Device malfunction [Unknown]
  - Fatigue [Unknown]
  - Hip fracture [Unknown]
  - Emphysema [Unknown]
